FAERS Safety Report 19591442 (Version 2)
Quarter: 2021Q3

REPORT INFORMATION
  Report Type: Spontaneous
  Country: DE (occurrence: DE)
  Receive Date: 20210721
  Receipt Date: 20210909
  Transmission Date: 20211014
  Serious: Yes (Hospitalization, Disabling)
  Sender: FDA-Public Use
  Company Number: DE-AMERICAN REGENT INC-2021001895

PATIENT
  Age: 49 Year
  Sex: Male
  Weight: 97 kg

DRUGS (2)
  1. FERINJECT [Suspect]
     Active Substance: FERRIC CARBOXYMALTOSE
     Indication: PRODUCT USED FOR UNKNOWN INDICATION
     Dosage: 500 MILLIGRAM
     Dates: start: 20170201
  2. FERINJECT [Suspect]
     Active Substance: FERRIC CARBOXYMALTOSE
     Dosage: 500 MILLIGRAM, EVERY OTHER WEEK
     Dates: start: 20210616

REACTIONS (15)
  - Bone marrow oedema [Unknown]
  - Arthralgia [Unknown]
  - Lordosis [Unknown]
  - Fracture [Recovering/Resolving]
  - Osteopenia [Unknown]
  - Bone pain [Recovering/Resolving]
  - Hypophosphataemia [Recovering/Resolving]
  - Osteomalacia [Recovering/Resolving]
  - Hypertension [Unknown]
  - Photosensitivity reaction [Unknown]
  - Chest pain [Unknown]
  - Stress fracture [Unknown]
  - Nasal mucosal disorder [Unknown]
  - Gait disturbance [Recovering/Resolving]
  - Rib fracture [Unknown]

NARRATIVE: CASE EVENT DATE: 202101
